FAERS Safety Report 5537929-7 (Version None)
Quarter: 2007Q4

REPORT INFORMATION
  Report Type: 
  Country: None (occurrence: None)
  Receive Date: 20071207
  Receipt Date: 20071128
  Transmission Date: 20080405
  Serious: Yes (Disabling)
  Sender: FDA-Public Use
  Company Number: GB-PFIZER INC-2007096261

PATIENT
  Sex: Male
  Weight: 76.2 kg

DRUGS (1)
  1. INSPRA [Suspect]
     Route: 048
     Dates: start: 20071112, end: 20071121

REACTIONS (3)
  - HYPERHIDROSIS [None]
  - PRURITUS [None]
  - RASH GENERALISED [None]
